FAERS Safety Report 8476657-5 (Version None)
Quarter: 2012Q2

REPORT INFORMATION
  Report Type: 
  Country: None (occurrence: None)
  Receive Date: 20120628
  Receipt Date: 20120619
  Transmission Date: 20120825
  Serious: Yes (Hospitalization, Other)
  Sender: FDA-Public Use
  Company Number: FR-VERTEX PHARMACEUTICALS INC.-000000000000000990

PATIENT
  Sex: Male
  Weight: 116 kg

DRUGS (12)
  1. PEGASYS [Concomitant]
     Indication: HEPATITIS C
     Dates: start: 20110223, end: 20120125
  2. FUROSEMIDE [Concomitant]
  3. ATORVASTATIN [Concomitant]
     Indication: PROPHYLAXIS
  4. TELAPREVIR [Suspect]
     Indication: HEPATITIS C
     Dosage: DOSAGE FORM: TABLET
     Route: 048
     Dates: start: 20110223, end: 20110518
  5. REBETOL [Concomitant]
     Indication: HEPATITIS C
     Dates: start: 20110223, end: 20120125
  6. ALLOPURINOL [Concomitant]
  7. KARDEGIC [Concomitant]
  8. POTASSIUM CHLORIDE [Concomitant]
  9. PREVISCAN (FLUINDIONE) [Concomitant]
  10. BISOPROLOL FUMARATE [Concomitant]
  11. EZETIMIBE [Concomitant]
     Indication: PROPHYLAXIS
  12. DIAMICRON [Concomitant]
     Indication: DIABETES MELLITUS

REACTIONS (2)
  - PLEURAL EFFUSION [None]
  - LYMPHADENOPATHY MEDIASTINAL [None]
